FAERS Safety Report 15716874 (Version 5)
Quarter: 2019Q1

REPORT INFORMATION
  Report Type: Spontaneous
  Country: HR (occurrence: HR)
  Receive Date: 20181213
  Receipt Date: 20190130
  Transmission Date: 20190417
  Serious: Yes (Hospitalization, Other)
  Sender: FDA-Public Use
  Company Number: HR-ASTELLAS-2018US052641

PATIENT
  Age: 67 Year
  Sex: Female

DRUGS (1)
  1. BETMIGA [Suspect]
     Active Substance: MIRABEGRON
     Indication: PRODUCT USED FOR UNKNOWN INDICATION
     Route: 065
     Dates: start: 20181113

REACTIONS (2)
  - Pancreatitis relapsing [Recovered/Resolved]
  - Adrenal adenoma [Unknown]

NARRATIVE: CASE EVENT DATE: 201812
